FAERS Safety Report 7553966-5 (Version None)
Quarter: 2011Q2

REPORT INFORMATION
  Report Type: 
  Country: None (occurrence: None)
  Receive Date: 20110614
  Receipt Date: 20110614
  Transmission Date: 20111010
  Serious: Yes (Hospitalization)
  Sender: FDA-Public Use
  Company Number: None

PATIENT
  Sex: Female
  Weight: 118.7 kg

DRUGS (2)
  1. TAXOL [Suspect]
     Dosage: 390 MG
     Dates: end: 20110504
  2. CARBOPLATIN [Suspect]
     Dosage: 900 MG
     Dates: end: 20110504

REACTIONS (4)
  - POSTOPERATIVE WOUND INFECTION [None]
  - PYREXIA [None]
  - ULCER [None]
  - FEELING ABNORMAL [None]
